FAERS Safety Report 23375361 (Version 3)
Quarter: 2025Q1

REPORT INFORMATION
  Report Type: Spontaneous
  Country: PK (occurrence: PK)
  Receive Date: 20240107
  Receipt Date: 20250210
  Transmission Date: 20250408
  Serious: Yes (Hospitalization)
  Sender: AMGEN
  Company Number: PK-PFIZER INC-PV202300209838

PATIENT
  Age: 39 Year
  Sex: Female

DRUGS (3)
  1. ENBREL [Suspect]
     Active Substance: ETANERCEPT
     Indication: Rheumatoid arthritis
     Dosage: 50 MG, WEEKLY
     Route: 058
     Dates: start: 20230714, end: 202411
  2. DELTACORTRIL [Concomitant]
     Active Substance: PREDNISOLONE
  3. NUBEROL [Concomitant]
     Dosage: UNK, 2X/DAY (BID 2WEEK CONTINUOUS)

REACTIONS (3)
  - Fibromyalgia [Unknown]
  - Drug ineffective [Unknown]
  - Disease progression [Unknown]
